FAERS Safety Report 12242366 (Version 2)
Quarter: 2016Q4

REPORT INFORMATION
  Report Type: Spontaneous
  Country: US (occurrence: US)
  Receive Date: 20160406
  Receipt Date: 20161207
  Transmission Date: 20170207
  Serious: Yes (Death, Other)
  Sender: FDA-Public Use
  Company Number: US-PFIZER INC-2016175240

PATIENT
  Age: 47 Year
  Sex: Female

DRUGS (4)
  1. FASLODEX [Suspect]
     Active Substance: FULVESTRANT
     Dosage: UNK
  2. IBRANCE [Suspect]
     Active Substance: PALBOCICLIB
     Indication: BREAST CANCER METASTATIC
     Dosage: 125 MG, CYCLIC (ONCE DAILY FOR 21 DAYS)
     Dates: start: 20160315
  3. FEMARA [Concomitant]
     Active Substance: LETROZOLE
     Dosage: 1 MG, DAILY
     Route: 048
     Dates: end: 20160720
  4. IBRANCE [Suspect]
     Active Substance: PALBOCICLIB
     Dosage: 125 MG, DAILY
     Route: 048
     Dates: start: 20160315, end: 20160722

REACTIONS (6)
  - Death [Fatal]
  - Pruritus [Unknown]
  - Rash [Recovered/Resolved]
  - Fatigue [Unknown]
  - Neoplasm progression [Unknown]
  - Nausea [Unknown]

NARRATIVE: CASE EVENT DATE: 20161020
